FAERS Safety Report 22020933 (Version 1)
Quarter: 2023Q1

REPORT INFORMATION
  Report Type: Spontaneous
  Country: CA (occurrence: CA)
  Receive Date: 20230222
  Receipt Date: 20230222
  Transmission Date: 20230418
  Serious: Yes (Other)
  Sender: FDA-Public Use
  Company Number: CA-AstraZeneca-2023A038027

PATIENT
  Sex: Female

DRUGS (1)
  1. TRASTUZUMAB DERUXTECAN [Suspect]
     Active Substance: TRASTUZUMAB DERUXTECAN
     Indication: HER2 positive breast cancer
     Dosage: 295 MG, ONCE EVRY 3 WK
     Route: 042

REACTIONS (4)
  - Colorectal cancer stage IV [Unknown]
  - Fatigue [Unknown]
  - Nausea [Unknown]
  - Quality of life decreased [Unknown]
